FAERS Safety Report 21821096 (Version 1)
Quarter: 2023Q1

REPORT INFORMATION
  Report Type: Spontaneous
  Country: US (occurrence: US)
  Receive Date: 20230105
  Receipt Date: 20230105
  Transmission Date: 20230418
  Serious: Yes (Other)
  Sender: FDA-Public Use
  Company Number: US-Shilpa Medicare Limited-SML-US-2022-01712

PATIENT
  Age: 3 Year
  Sex: Male

DRUGS (6)
  1. GEMCITABINE [Suspect]
     Active Substance: GEMCITABINE
     Indication: Fibrosarcoma metastatic
  2. IRINOTECAN [Suspect]
     Active Substance: IRINOTECAN
     Indication: Fibrosarcoma metastatic
  3. DOCETAXEL [Suspect]
     Active Substance: DOCETAXEL
     Indication: Fibrosarcoma metastatic
  4. TEMOZOLOMIDE [Suspect]
     Active Substance: TEMOZOLOMIDE
     Indication: Fibrosarcoma metastatic
  5. TRABECTEDIN [Suspect]
     Active Substance: TRABECTEDIN
     Indication: Fibrosarcoma metastatic
  6. PEVONEDISTAT [Suspect]
     Active Substance: PEVONEDISTAT
     Indication: Fibrosarcoma metastatic

REACTIONS (6)
  - Disease progression [Unknown]
  - Nausea [Unknown]
  - Headache [Unknown]
  - Eye pain [Unknown]
  - Metastases to meninges [Unknown]
  - Drug ineffective [Unknown]
